FAERS Safety Report 7326740-2 (Version None)
Quarter: 2011Q1

REPORT INFORMATION
  Report Type: 
  Country: None (occurrence: None)
  Receive Date: 20110302
  Receipt Date: 20090727
  Transmission Date: 20110831
  Serious: No
  Sender: FDA-Public Use
  Company Number: US-PFIZER INC-2009243500

PATIENT
  Sex: Female
  Weight: 49.887 kg

DRUGS (2)
  1. FLUTICASONE [Concomitant]
     Dosage: UNK
  2. DILANTIN [Suspect]
     Indication: EPILEPSY
     Dosage: 100 MG, 3X/DAY

REACTIONS (4)
  - NAUSEA [None]
  - NERVOUSNESS [None]
  - DIZZINESS [None]
  - TREMOR [None]
